FAERS Safety Report 11996313 (Version 1)
Quarter: 2016Q1

REPORT INFORMATION
  Report Type: Spontaneous
  Country: US (occurrence: US)
  Receive Date: 20160203
  Receipt Date: 20160203
  Transmission Date: 20160526
  Serious: No
  Sender: FDA-Public Use
  Company Number: US-JACOBUS PHARMACEUTICAL COMPANY, INC.-1047279

PATIENT
  Sex: Female

DRUGS (8)
  1. BETAPACE [Concomitant]
     Active Substance: SOTALOL HYDROCHLORIDE
  2. SUNMARK FIBER LAXATIVE (CALCIUM POLYCARBOPHIL) [Concomitant]
     Active Substance: CALCIUM POLYCARBOPHIL
  3. SYNTHROID [Concomitant]
     Active Substance: LEVOTHYROXINE SODIUM
  4. GABAPENTIN. [Concomitant]
     Active Substance: GABAPENTIN
  5. NICOTINAMIDE (NIACINAMIDE) [Concomitant]
  6. SULFASALAZINE. [Suspect]
     Active Substance: SULFASALAZINE
  7. DAPSONE. [Suspect]
     Active Substance: DAPSONE
  8. CALCIUM CARBONATE. [Concomitant]
     Active Substance: CALCIUM CARBONATE

REACTIONS (1)
  - Haemoglobin decreased [Unknown]
